FAERS Safety Report 14226076 (Version 1)
Quarter: 2017Q4

REPORT INFORMATION
  Report Type: Spontaneous
  Country: US (occurrence: None)
  Receive Date: 20171124
  Receipt Date: 20171124
  Transmission Date: 20180321
  Serious: No
  Sender: FDA-Public Use
  Company Number: None

PATIENT
  Sex: Female

DRUGS (1)
  1. HUMIRA [Suspect]
     Active Substance: ADALIMUMAB
     Indication: CROHN^S DISEASE
     Route: 058
     Dates: start: 20170601

REACTIONS (6)
  - Irritability [None]
  - Acne [None]
  - Feeling abnormal [None]
  - Abdominal pain upper [None]
  - Alopecia [None]
  - Weight increased [None]
